FAERS Safety Report 7363863-6 (Version None)
Quarter: 2011Q1

REPORT INFORMATION
  Report Type: 
  Country: None (occurrence: None)
  Receive Date: 20110321
  Receipt Date: 20110316
  Transmission Date: 20110831
  Serious: Yes (Other)
  Sender: FDA-Public Use
  Company Number: DE-PFIZER INC-2011057645

PATIENT
  Sex: Female

DRUGS (1)
  1. LYRICA [Suspect]
     Dosage: UNK
     Dates: start: 20110101, end: 20110311

REACTIONS (6)
  - CONVULSION [None]
  - FATIGUE [None]
  - PALPITATIONS [None]
  - VISUAL IMPAIRMENT [None]
  - EYE IRRITATION [None]
  - DIZZINESS [None]
